FAERS Safety Report 8893476 (Version 1)
Quarter: 2012Q4

REPORT INFORMATION
  Report Type: 
  Country: US (occurrence: US)
  Receive Date: 20121107
  Receipt Date: 20121107
  Transmission Date: 20130627
  Serious: No
  Sender: FDA-Public Use
  Company Number: US-AMGEN-USASP2011060567

PATIENT
  Age: 53 Year
  Sex: Female

DRUGS (2)
  1. ENBREL [Suspect]
     Indication: PSORIATIC ARTHROPATHY
     Dosage: 50 mg, qwk
     Dates: start: 201108
  2. PLAQUENIL                          /00072602/ [Concomitant]

REACTIONS (4)
  - Fatigue [Unknown]
  - Dry mouth [Recovering/Resolving]
  - Anaemia [Unknown]
  - Oral infection [Recovering/Resolving]
